FAERS Safety Report 9701810 (Version 2)
Quarter: 2014Q1

REPORT INFORMATION
  Report Type: Spontaneous
  Country: US (occurrence: US)
  Receive Date: 20131121
  Receipt Date: 20140307
  Transmission Date: 20141002
  Serious: No
  Sender: FDA-Public Use
  Company Number: US-PFIZER INC-2013333139

PATIENT
  Age: 70 Year
  Sex: Female
  Weight: 79.4 kg

DRUGS (3)
  1. ESTRING [Suspect]
     Indication: VULVOVAGINAL DRYNESS
     Dosage: UNK
     Dates: start: 2012
  2. ESTRING [Suspect]
     Indication: ATROPHIC VULVOVAGINITIS
  3. PREVACID [Concomitant]
     Indication: GASTROOESOPHAGEAL REFLUX DISEASE
     Dosage: 15 MG, 2X/DAY

REACTIONS (2)
  - Drug ineffective [Unknown]
  - Cystitis-like symptom [Unknown]
